FAERS Safety Report 5192409-6 (Version None)
Quarter: 2006Q4

REPORT INFORMATION
  Report Type: 
  Country: None (occurrence: None)
  Receive Date: 20061227
  Receipt Date: 20061218
  Transmission Date: 20070319
  Serious: Yes (Hospitalization)
  Sender: FDA-Public Use
  Company Number: FR-PFIZER INC-2006154643

PATIENT
  Age: 71 Year
  Sex: Female

DRUGS (5)
  1. MEDROL [Suspect]
     Indication: BRONCHITIS
     Route: 048
     Dates: start: 20061025, end: 20061030
  2. FLUINDIONE [Interacting]
     Indication: BRONCHITIS
     Dosage: DAILY DOSE:15MG-FREQ:DAILY
     Route: 048
  3. TELITHROMYCIN [Interacting]
     Indication: BRONCHITIS
     Route: 048
     Dates: start: 20061025, end: 20061030
  4. AMBROXOL HYDROCHLORIDE [Concomitant]
     Route: 048
     Dates: start: 20061025, end: 20061030
  5. CODEINE/ERYSIMIN [Concomitant]
     Route: 048
     Dates: start: 20061025, end: 20061030

REACTIONS (4)
  - BACK PAIN [None]
  - DRUG INTERACTION [None]
  - INTERNATIONAL NORMALISED RATIO INCREASED [None]
  - MUSCLE HAEMORRHAGE [None]
